FAERS Safety Report 6894587-7 (Version None)
Quarter: 2010Q3

REPORT INFORMATION
  Report Type: 
  Country: None (occurrence: None)
  Receive Date: 20100802
  Receipt Date: 20100721
  Transmission Date: 20110219
  Serious: Yes (Hospitalization, Disabling, Other)
  Sender: FDA-Public Use
  Company Number: PHHY2010US41923

PATIENT
  Sex: Male
  Weight: 89 kg

DRUGS (15)
  1. RECLAST [Suspect]
     Indication: OSTEITIS DEFORMANS
     Dosage: UNK
     Route: 042
     Dates: start: 20100614
  2. RECLAST [Suspect]
     Indication: METASTASES TO BONE
  3. LEVOXYL [Concomitant]
  4. COZAAR [Concomitant]
  5. COMBIVENT [Concomitant]
  6. ADVAIR DISKUS 100/50 [Concomitant]
  7. ASTELIN [Concomitant]
  8. FLONASE [Concomitant]
  9. CALCIUM [Concomitant]
  10. VITAMIN D [Concomitant]
  11. M.V.I. [Concomitant]
  12. FISH OIL [Concomitant]
  13. EVENING PRIMROSE OIL [Concomitant]
  14. BUDESONIDE [Concomitant]
  15. PRILACE [Concomitant]

REACTIONS (5)
  - BONE PAIN [None]
  - GLOMERULAR FILTRATION RATE DECREASED [None]
  - MUSCULOSKELETAL PAIN [None]
  - PAIN [None]
  - THYROIDECTOMY [None]
